FAERS Safety Report 6573353-6 (Version None)
Quarter: 2010Q1

REPORT INFORMATION
  Report Type: 
  Country: None (occurrence: None)
  Receive Date: 20100208
  Receipt Date: 20100126
  Transmission Date: 20100710
  Serious: Yes (Other)
  Sender: FDA-Public Use
  Company Number: US-SANOFI-AVENTIS-2009SA009168

PATIENT
  Age: 27 Year
  Sex: Female
  Weight: 132.9 kg

DRUGS (11)
  1. LOVENOX [Suspect]
     Indication: OBESITY
     Route: 058
     Dates: start: 20091022, end: 20091108
  2. LOVENOX [Suspect]
     Indication: IMMOBILE
     Route: 058
     Dates: start: 20091022, end: 20091108
  3. LOVENOX [Suspect]
     Indication: HABITUAL ABORTION
     Route: 058
     Dates: start: 20091022, end: 20091108
  4. LOVENOX [Suspect]
     Route: 058
     Dates: start: 20091022, end: 20091108
  5. SYNTHROID [Concomitant]
     Indication: HYPOTHYROIDISM
     Route: 065
     Dates: start: 20090101
  6. GLYBURIDE [Concomitant]
     Indication: DIABETES MELLITUS
     Dosage: 75 MG PM; ILLEGIBLE DOSING FOR PM
     Route: 065
     Dates: start: 20090801, end: 20091109
  7. CELESTONE /NET/ [Concomitant]
     Dosage: ROUTE IM
     Route: 065
     Dates: start: 20090921, end: 20090922
  8. HYDROXYPROGESTERONE CAPROATE [Concomitant]
     Indication: PROPHYLAXIS
     Dosage: ROUTE IM
     Route: 065
     Dates: start: 20090828, end: 20091108
  9. HYDROXYPROGESTERONE CAPROATE [Concomitant]
     Dosage: ROUTE IM
     Route: 065
     Dates: start: 20090828, end: 20091108
  10. AMBIEN CR [Concomitant]
     Indication: INSOMNIA
     Dosage: DOSE ILLEGIBLE
     Route: 048
     Dates: start: 20091019
  11. VITAMIN TAB [Concomitant]
     Dosage: 1 PILL
     Route: 048
     Dates: start: 20090601

REACTIONS (2)
  - DRUG EXPOSURE DURING PREGNANCY [None]
  - PREMATURE LABOUR [None]
